FAERS Safety Report 13869774 (Version 3)
Quarter: 2017Q4

REPORT INFORMATION
  Report Type: Spontaneous
  Country: US (occurrence: US)
  Receive Date: 20170815
  Receipt Date: 20171204
  Transmission Date: 20180320
  Serious: No
  Sender: FDA-Public Use
  Company Number: US-PFIZER INC-2017349254

PATIENT
  Age: 10 Year
  Sex: Female
  Weight: 28 kg

DRUGS (6)
  1. GENOTROPIN [Suspect]
     Active Substance: SOMATROPIN
     Indication: BLOOD GROWTH HORMONE ABNORMAL
     Dosage: 1.0 UNK, UNK
  2. GENOTROPIN [Suspect]
     Active Substance: SOMATROPIN
     Indication: THYROID DISORDER
     Dosage: 0.8 UNK, UNK
  3. LEVOTHYROXINE SODIUM. [Suspect]
     Active Substance: LEVOTHYROXINE SODIUM
     Indication: THYROID DISORDER
     Dosage: 0.5 MG, DAILY (ONE TABLET EVERY MORNING)
  4. GENOTROPIN [Suspect]
     Active Substance: SOMATROPIN
     Dosage: 1.2MG BY INJECTION EVERY NIGHT
     Dates: end: 20170710
  5. GENOTROPIN [Suspect]
     Active Substance: SOMATROPIN
     Dosage: 1.2 MG, DAILY (EVERY NIGHT INJECTED ROATED ON LEG AND BUT CHEEK)
     Dates: start: 201703
  6. LEVOTHYROXINE SODIUM. [Suspect]
     Active Substance: LEVOTHYROXINE SODIUM
     Dosage: 0.75 MG, DAILY

REACTIONS (6)
  - Thyroid disorder [Unknown]
  - Fatigue [Unknown]
  - Yellow skin [Unknown]
  - Drug dose omission [Not Recovered/Not Resolved]
  - Drug prescribing error [Unknown]
  - Weight decreased [Unknown]

NARRATIVE: CASE EVENT DATE: 201711
